FAERS Safety Report 4413932-5 (Version None)
Quarter: 2004Q3

REPORT INFORMATION
  Report Type: 
  Country: None (occurrence: None)
  Receive Date: 20040728
  Receipt Date: 20040715
  Transmission Date: 20050211
  Serious: No
  Sender: FDA-Public Use
  Company Number: 2004025636

PATIENT
  Age: 69 Year
  Sex: Male
  Weight: 83 kg

DRUGS (7)
  1. NEURONTIN [Suspect]
     Indication: NEUROPATHY PERIPHERAL
     Dosage: 1800 MG, ORAL
     Route: 048
     Dates: start: 20040130
  2. CLOPIDOGREL BISULFATE [Concomitant]
  3. VERAPAMIL HYDROCHLORIDE [Concomitant]
  4. BENAZEPRIL HCL [Concomitant]
  5. GLICLAZIDE [Concomitant]
  6. METFORMIN HCL [Concomitant]
  7. NITROGLYCERIN [Concomitant]

REACTIONS (1)
  - VERTIGO [None]
